FAERS Safety Report 4608840-0 (Version None)
Quarter: 2005Q1

REPORT INFORMATION
  Report Type: 
  Country: None (occurrence: None)
  Receive Date: 20050315
  Receipt Date: 20050228
  Transmission Date: 20050727
  Serious: Yes (Death)
  Sender: FDA-Public Use
  Company Number: JP-GLAXOSMITHKLINE-B0373189A

PATIENT
  Age: 66 Year
  Sex: Male
  Weight: 58 kg

DRUGS (15)
  1. ALKERAN [Suspect]
     Indication: BONE MARROW CONDITIONING REGIMEN
     Route: 042
     Dates: start: 20040520, end: 20040521
  2. GRAN [Concomitant]
     Indication: HAEMATOPOIETIC STEM CELL MOBILISATION
     Dates: start: 20040529, end: 20040601
  3. ULCERLMIN [Concomitant]
     Route: 048
     Dates: start: 20040511, end: 20040531
  4. DIOVAN [Concomitant]
     Route: 048
     Dates: start: 20040511, end: 20040531
  5. MUCODYNE [Concomitant]
     Route: 048
     Dates: start: 20040511, end: 20040531
  6. KLARICID [Concomitant]
     Route: 048
     Dates: start: 20040511, end: 20040531
  7. DIFLUCAN [Concomitant]
     Route: 048
     Dates: start: 20040518, end: 20040531
  8. ZOVIRAX [Concomitant]
     Route: 048
     Dates: start: 20040519, end: 20040531
  9. ALLOID G [Concomitant]
     Route: 048
     Dates: start: 20040527, end: 20040531
  10. SAXIZON [Concomitant]
     Dates: start: 20040524, end: 20040524
  11. AMIKACIN SULFATE [Concomitant]
     Dates: start: 20040530, end: 20040601
  12. MODACIN [Concomitant]
     Route: 042
     Dates: start: 20040530, end: 20040601
  13. PRIMAXIN [Concomitant]
     Dates: start: 20040601, end: 20040602
  14. DOPAMINE [Concomitant]
  15. DOBUTREX [Concomitant]

REACTIONS (7)
  - ENTERITIS INFECTIOUS [None]
  - ENTEROCOCCAL INFECTION [None]
  - GASTROINTESTINAL DISORDER [None]
  - GENERAL PHYSICAL HEALTH DETERIORATION [None]
  - HAEMORRHAGE [None]
  - SEPTIC SHOCK [None]
  - STAPHYLOCOCCAL INFECTION [None]
